FAERS Safety Report 13862774 (Version 2)
Quarter: 2017Q3

REPORT INFORMATION
  Report Type: Report from Study
  Country: JP (occurrence: JP)
  Receive Date: 20170814
  Receipt Date: 20170914
  Transmission Date: 20171127
  Serious: Yes (Death, Life-Threatening, Other)
  Sender: FDA-Public Use
  Company Number: JP-ROCHE-1672232

PATIENT
  Age: 51 Year
  Sex: Female
  Weight: 52 kg

DRUGS (16)
  1. VEMURAFENIB. [Suspect]
     Active Substance: VEMURAFENIB
     Route: 048
     Dates: start: 20150708, end: 20150721
  2. PREDONINE [Suspect]
     Active Substance: PREDNISOLONE
     Dosage: MOST RECENT DOSE: 30/JUN/2015
     Route: 048
     Dates: start: 20150624
  3. LOXONIN [Concomitant]
     Active Substance: LOXOPROFEN SODIUM
     Indication: PROPHYLAXIS
     Route: 048
     Dates: start: 20150708, end: 20150804
  4. LOXONIN [Concomitant]
     Active Substance: LOXOPROFEN SODIUM
     Dosage: TAKEN AS NEEDED.
     Route: 048
     Dates: start: 20150804
  5. VEMURAFENIB. [Suspect]
     Active Substance: VEMURAFENIB
     Route: 048
     Dates: start: 20150701, end: 20150707
  6. VEMURAFENIB. [Suspect]
     Active Substance: VEMURAFENIB
     Dosage: ON 21/FEB/2016, MOST RECENT DOSE.
     Route: 048
     Dates: start: 20160113
  7. VEMURAFENIB. [Suspect]
     Active Substance: VEMURAFENIB
     Route: 048
     Dates: start: 20150722, end: 20151027
  8. PREDONINE [Suspect]
     Active Substance: PREDNISOLONE
     Indication: PROPHYLAXIS
     Dosage: MOST RECENT DOSE: 16/JUN/2015
     Route: 048
     Dates: start: 20150610
  9. VOLTAREN [Concomitant]
     Active Substance: DICLOFENAC SODIUM
     Indication: MALIGNANT MELANOMA
     Dosage: TAKEN AS NEEDED.
     Route: 048
     Dates: start: 20150602
  10. VEMURAFENIB. [Suspect]
     Active Substance: VEMURAFENIB
     Indication: MALIGNANT MELANOMA
     Route: 048
     Dates: start: 20150610, end: 20150616
  11. VEMURAFENIB. [Suspect]
     Active Substance: VEMURAFENIB
     Route: 048
     Dates: start: 20150617, end: 20150619
  12. PREDONINE [Suspect]
     Active Substance: PREDNISOLONE
     Dosage: 1 DAY?MOST RECENT DOSE: 07/JUL/2015
     Route: 048
     Dates: start: 20150701
  13. TRAMCET [Concomitant]
     Active Substance: ACETAMINOPHEN\TRAMADOL
     Indication: MALIGNANT MELANOMA
     Dosage: DOSAGE IS UNCERTAIN.
     Route: 065
     Dates: start: 20150602, end: 20150824
  14. MYSLEE [Concomitant]
     Active Substance: ZOLPIDEM TARTRATE
     Dosage: DOSAGE IS UNCERTAIN.
     Route: 065
     Dates: start: 20150602, end: 20150824
  15. PREDONINE [Suspect]
     Active Substance: PREDNISOLONE
     Dosage: MOST RECENT DOSE: 23/JUN/2015
     Route: 048
     Dates: start: 20150620
  16. YERVOY [Concomitant]
     Active Substance: IPILIMUMAB
     Dosage: ONCE DOSAGE: 136.5 (UNIT UNCERTAINTY)
     Route: 041
     Dates: start: 20151104, end: 20151125

REACTIONS (7)
  - Malignant melanoma [Fatal]
  - Drug eruption [Recovered/Resolved]
  - Myalgia [Recovered/Resolved]
  - Anaemia [Recovering/Resolving]
  - Acne [Not Recovered/Not Resolved]
  - Erythema multiforme [Recovered/Resolved]
  - Arthralgia [Recovered/Resolved]

NARRATIVE: CASE EVENT DATE: 20150612
